FAERS Safety Report 8980166 (Version 3)
Quarter: 2013Q1

REPORT INFORMATION
  Report Type: Report from Study
  Country: US (occurrence: US)
  Receive Date: 20121221
  Receipt Date: 20130130
  Transmission Date: 20140127
  Serious: Yes (Hospitalization)
  Sender: FDA-Public Use
  Company Number: US-VERTEX PHARMACEUTICALS INC.-2012-026544

PATIENT
  Sex: Male
  Weight: 53 kg

DRUGS (18)
  1. VX-770 [Suspect]
     Indication: CYSTIC FIBROSIS
     Dosage: 150 MG, BID
     Route: 048
     Dates: start: 20120622
  2. ALBUTEROL [Concomitant]
     Dosage: 2 DF, PRN
     Route: 055
  3. DORNASE ALFA [Concomitant]
     Dosage: 2.5 MG, QD
     Route: 045
  4. FLUTICASONE [Concomitant]
     Dosage: 2 DF, QD
     Route: 045
  5. FLOVENT [Concomitant]
     Dosage: 220 ?G, BID
     Route: 055
  6. ADVAIR [Concomitant]
     Dosage: 1 DF, BID
     Route: 055
  7. MONTELUKAST [Concomitant]
     Dosage: 10 MG, QHS
     Route: 048
  8. LORAZEPAM [Concomitant]
     Dosage: 1 MG, QHS
     Route: 048
  9. AZITHROMYCIN [Concomitant]
     Dosage: 250 MG, MWF
     Route: 048
  10. FERROUS SULFATE [Concomitant]
     Dosage: 324 MG, QD
     Route: 048
  11. MULTIVITAMINS [Concomitant]
     Dosage: 1 DF, QD
     Route: 048
  12. ACTONEL [Concomitant]
     Indication: OSTEOPOROSIS
     Dosage: 35 MG, QW
     Route: 048
  13. MIRALAX [Concomitant]
     Dosage: 17 G, QD
     Route: 048
  14. CAYSTON [Concomitant]
     Dosage: 75 MG, TID
     Route: 045
  15. CALCIUM CARBONATE [Concomitant]
     Dosage: 1 DF, BID
     Route: 048
  16. VITAMIN D [Concomitant]
  17. INFLUENZA VACCINE [Concomitant]
     Dosage: 0.5 ML, SINGLE
     Route: 030
     Dates: start: 20121211
  18. TOBI [Concomitant]
     Dosage: 170 MG, BID, EVERY OTHER MONTH
     Route: 045

REACTIONS (6)
  - Infective exacerbation of bronchiectasis [Recovered/Resolved]
  - Weight decreased [Not Recovered/Not Resolved]
  - Decreased appetite [Recovered/Resolved]
  - Insomnia [Unknown]
  - Haemoptysis [Recovered/Resolved]
  - Upper respiratory tract infection [Recovered/Resolved]
